FAERS Safety Report 15487974 (Version 3)
Quarter: 2018Q4

REPORT INFORMATION
  Report Type: Spontaneous
  Country: US (occurrence: US)
  Receive Date: 20181011
  Receipt Date: 20181016
  Transmission Date: 20190205
  Serious: No
  Sender: FDA-Public Use
  Company Number: US-SA-2018SA277361

PATIENT
  Age: 58 Year
  Sex: Male

DRUGS (1)
  1. KEVZARA [Suspect]
     Active Substance: SARILUMAB
     Dosage: 200 MG, QOW
     Route: 058
     Dates: start: 20180717

REACTIONS (2)
  - Oropharyngeal pain [Unknown]
  - Stomatitis [Unknown]

NARRATIVE: CASE EVENT DATE: 2018
